FAERS Safety Report 5795732-7 (Version None)
Quarter: 2008Q2

REPORT INFORMATION
  Report Type: 
  Country: None (occurrence: None)
  Receive Date: 20080630
  Receipt Date: 20080625
  Transmission Date: 20081010
  Serious: Yes (Other)
  Sender: FDA-Public Use
  Company Number: US-BOEHRINGER INGELHEIM GMBH, GERMANY-2008-BP-09964BP

PATIENT
  Sex: Male

DRUGS (6)
  1. SPIRIVA [Suspect]
     Indication: CHRONIC OBSTRUCTIVE PULMONARY DISEASE
     Route: 055
     Dates: start: 20060101
  2. ALBUTEROL [Concomitant]
  3. NEXIUM [Concomitant]
  4. COZAAR [Concomitant]
  5. LIPITOR [Concomitant]
  6. FINASTERIDE [Concomitant]

REACTIONS (2)
  - CARDIAC DISORDER [None]
  - WHEEZING [None]
